FAERS Safety Report 18514702 (Version 2)
Quarter: 2022Q4

REPORT INFORMATION
  Report Type: Spontaneous
  Country: DE (occurrence: DE)
  Receive Date: 20201118
  Receipt Date: 20221024
  Transmission Date: 20230113
  Serious: Yes (Hospitalization)
  Sender: FDA-Public Use
  Company Number: DE-ADRED-06021-01

PATIENT
  Age: 59 Year
  Sex: Male

DRUGS (17)
  1. IBUPROFEN [Suspect]
     Active Substance: IBUPROFEN
     Indication: Product used for unknown indication
     Dosage: AS NEEDED, TABLET
     Route: 048
  2. RIVAROXABAN [Suspect]
     Active Substance: RIVAROXABAN
     Indication: Product used for unknown indication
     Dosage: 1-0-0-0, TABLET
     Route: 048
  3. CLOPIDOGREL [Suspect]
     Active Substance: CLOPIDOGREL BISULFATE
     Indication: Product used for unknown indication
     Dosage: 1-0-0-0, TABLET
     Route: 048
  4. SPIRONOLACTONE [Suspect]
     Active Substance: SPIRONOLACTONE
     Indication: Product used for unknown indication
     Dosage: 1-0-0-0, TABLET
     Route: 048
  5. EPLERENONE [Suspect]
     Active Substance: EPLERENONE
     Indication: Product used for unknown indication
     Dosage: 1-0-0-0, TABLET
     Route: 048
  6. IVABRADINE [Concomitant]
     Active Substance: IVABRADINE
     Indication: Product used for unknown indication
     Dosage: 1-0-0-1 TABLETS
     Route: 048
  7. ALBUTEROL [Concomitant]
     Active Substance: ALBUTEROL
     Indication: Product used for unknown indication
     Dosage: 0,1 MG, AS NEEDED, METERED DOSE INHALER
     Route: 055
  8. ALLOPURINOL [Concomitant]
     Active Substance: ALLOPURINOL
     Indication: Product used for unknown indication
     Route: 048
  9. EZETIMIBE [Concomitant]
     Active Substance: EZETIMIBE
     Indication: Product used for unknown indication
     Dosage: 0-0-1-0 TABLET
     Route: 048
  10. TIOTROPIUM BROMIDE [Concomitant]
     Active Substance: TIOTROPIUM BROMIDE
     Indication: Product used for unknown indication
     Dosage: 18 G, 1-0-0-0, METERED DOSE INHALER
     Route: 055
  11. ASPIRIN [Concomitant]
     Active Substance: ASPIRIN
     Indication: Product used for unknown indication
     Dosage: 1-0-0-0 TABLET
     Route: 048
  12. METFORMIN [Concomitant]
     Active Substance: METFORMIN HYDROCHLORIDE
     Indication: Product used for unknown indication
     Dosage: 1-0-1-0 TABLET
     Route: 048
  13. FUROSEMIDE [Concomitant]
     Active Substance: FUROSEMIDE
     Indication: Product used for unknown indication
     Dosage: 1-0.5-0-0, TABLET
     Route: 048
  14. FUROSEMIDE [Concomitant]
     Active Substance: FUROSEMIDE
     Dosage: 40 MG, 1-0.5-0-0, TABLETS
     Route: 048
  15. MAGNESIUM DIASPORAL [MAGNESIUM CITRATE] [Concomitant]
     Indication: Product used for unknown indication
     Dosage: 1-0-1-0 TABLET
     Route: 048
  16. PANTOPRAZOLE [Concomitant]
     Active Substance: PANTOPRAZOLE
     Indication: Product used for unknown indication
     Dosage: 0-0-1-0 TABLET
     Route: 048
  17. SACUBITRIL\VALSARTAN [Concomitant]
     Active Substance: SACUBITRIL\VALSARTAN
     Indication: Product used for unknown indication
     Dosage: 49|51 MG 1-0-1-0 TABLET
     Route: 048

REACTIONS (12)
  - General physical health deterioration [Unknown]
  - Electrolyte imbalance [Unknown]
  - Product prescribing error [Unknown]
  - Product prescribing error [Unknown]
  - Product prescribing error [Unknown]
  - Haematemesis [Unknown]
  - Nausea [Unknown]
  - Vomiting [Unknown]
  - Melaena [Unknown]
  - Haematemesis [Unknown]
  - Gastritis [Unknown]
  - Transaminases increased [Unknown]

NARRATIVE: CASE EVENT DATE: 20200910
